FAERS Safety Report 5871259-9 (Version None)
Quarter: 2008Q3

REPORT INFORMATION
  Report Type: 
  Country: None (occurrence: None)
  Receive Date: 20080905
  Receipt Date: 20080808
  Transmission Date: 20090109
  Serious: No
  Sender: FDA-Public Use
  Company Number: US-JNJFOC-20080802498

PATIENT
  Age: 36 Year
  Sex: Male
  Weight: 86.64 kg

DRUGS (5)
  1. INVEGA [Suspect]
     Indication: ANXIETY
     Route: 048
  2. PAXIL [Concomitant]
     Indication: OBSESSIVE-COMPULSIVE DISORDER
     Route: 048
  3. JANUVIA [Concomitant]
     Indication: TYPE 2 DIABETES MELLITUS
     Route: 048
  4. ATENOLOL [Concomitant]
     Indication: BLOOD PRESSURE
     Route: 048
  5. LISINOPRIL [Concomitant]
     Indication: BLOOD PRESSURE
     Route: 048

REACTIONS (1)
  - HEART RATE INCREASED [None]
